FAERS Safety Report 25535999 (Version 2)
Quarter: 2025Q3

REPORT INFORMATION
  Report Type: Report from Study
  Country: US (occurrence: US)
  Receive Date: 20250709
  Receipt Date: 20250819
  Transmission Date: 20251021
  Serious: Yes (Other)
  Sender: MERCK SHARP & DOHME LLC
  Company Number: US-009507513-2302796

PATIENT
  Sex: Female

DRUGS (2)
  1. KEYTRUDA [Suspect]
     Active Substance: PEMBROLIZUMAB
     Indication: Hodgkin^s disease
     Dosage: STRENGTH: 100MG
     Dates: start: 2020
  2. KEYTRUDA [Suspect]
     Active Substance: PEMBROLIZUMAB
     Indication: Hodgkin^s disease
     Dosage: STRENGTH: 100MG
     Dates: start: 20250520, end: 2025

REACTIONS (7)
  - Malignant neoplasm progression [Not Recovered/Not Resolved]
  - Pyrexia [Not Recovered/Not Resolved]
  - Tachycardia [Not Recovered/Not Resolved]
  - Stress [Not Recovered/Not Resolved]
  - Drug resistance [Not Recovered/Not Resolved]
  - Pain [Not Recovered/Not Resolved]
  - Therapy cessation [Unknown]

NARRATIVE: CASE EVENT DATE: 20250101
